FAERS Safety Report 6441885-7 (Version None)
Quarter: 2009Q4

REPORT INFORMATION
  Report Type: 
  Country: None (occurrence: None)
  Receive Date: 20091116
  Receipt Date: 20091106
  Transmission Date: 20100525
  Serious: Yes (Hospitalization)
  Sender: FDA-Public Use
  Company Number: BR-ABBOTT-09P-020-0607141-00

PATIENT
  Sex: Female
  Weight: 58 kg

DRUGS (2)
  1. HUMIRA [Suspect]
     Indication: RHEUMATOID ARTHRITIS
     Route: 058
     Dates: start: 20090601, end: 20090901
  2. UNKNOWN [Concomitant]
     Indication: TUBERCULIN TEST POSITIVE

REACTIONS (4)
  - ARTHRALGIA [None]
  - GALLBLADDER PAIN [None]
  - PHARYNGITIS [None]
  - WEIGHT DECREASED [None]
